FAERS Safety Report 23503370 (Version 2)
Quarter: 2024Q2

REPORT INFORMATION
  Report Type: Spontaneous
  Country: US (occurrence: US)
  Receive Date: 20240208
  Receipt Date: 20240424
  Transmission Date: 20240716
  Serious: Yes (Hospitalization, Other)
  Sender: FDA-Public Use
  Company Number: US-BRISTOL-MYERS SQUIBB COMPANY-2024-021072

PATIENT
  Age: 66 Year
  Sex: Female

DRUGS (7)
  1. REVLIMID [Suspect]
     Active Substance: LENALIDOMIDE
     Indication: Plasma cell myeloma
     Dosage: FREQUENCY: ONCE DAILY FOR 21 DAYS IN 28-DAY CYCLE
     Route: 048
     Dates: start: 20240102, end: 20240122
  2. DEXAMETHASONE [Suspect]
     Active Substance: DEXAMETHASONE
     Indication: Plasma cell myeloma
     Dosage: FREQUENCY: DAYS 1, 8, 15, 22 IN 28-DAY CYCLE
     Route: 048
     Dates: start: 20240102, end: 20240122
  3. CEFTRIAXONE [Concomitant]
     Active Substance: CEFTRIAXONE\CEFTRIAXONE SODIUM
     Indication: Pneumonia
     Dosage: FREQUENCY: Q24 HR
     Route: 042
     Dates: start: 20240130, end: 20240203
  4. DOXYCYCLINE [Concomitant]
     Active Substance: DOXYCYCLINE
     Indication: Pneumonia
     Dosage: FREQUENCY: Q12 HR
     Route: 042
     Dates: start: 20240130, end: 20240202
  5. OSELTAMIVIR [Concomitant]
     Active Substance: OSELTAMIVIR
     Indication: Influenza
     Dosage: FREQUENCY: Q12 HR
     Route: 048
     Dates: start: 20240130, end: 20240202
  6. LEVOFLOXACIN [Concomitant]
     Active Substance: LEVOFLOXACIN
     Indication: Pneumonia
     Dosage: FREQUENCY: DAILY
     Route: 048
     Dates: start: 20240202, end: 20240204
  7. ALBUTEROL\IPRATROPIUM [Concomitant]
     Active Substance: ALBUTEROL\IPRATROPIUM
     Indication: Dyspnoea
     Dosage: DUO-NEB, FREQUENCY: PRN Q4 HR
     Route: 055
     Dates: start: 20240129, end: 20240202

REACTIONS (3)
  - Pneumonia [Recovered/Resolved]
  - Acute respiratory failure [Recovered/Resolved]
  - Influenza [Recovered/Resolved]

NARRATIVE: CASE EVENT DATE: 20240129
